FAERS Safety Report 5346416-0 (Version None)
Quarter: 2007Q2

REPORT INFORMATION
  Report Type: 
  Country: None (occurrence: None)
  Receive Date: 20070605
  Receipt Date: 20070601
  Transmission Date: 20071010
  Serious: Yes (Hospitalization)
  Sender: FDA-Public Use
  Company Number: JP-SHR-JP-2005-021690

PATIENT
  Age: 58 Year
  Sex: Male

DRUGS (2)
  1. FLUDARA [Suspect]
     Indication: CHRONIC LYMPHOCYTIC LEUKAEMIA
     Dates: start: 20050621, end: 20050623
  2. FLUDARA [Suspect]
     Dates: start: 20050901

REACTIONS (1)
  - RENAL CELL CARCINOMA STAGE UNSPECIFIED [None]
